FAERS Safety Report 23733707 (Version 2)
Quarter: 2024Q3

REPORT INFORMATION
  Report Type: Report from Study
  Country: BR (occurrence: BR)
  Receive Date: 20240411
  Receipt Date: 20240923
  Transmission Date: 20241016
  Serious: Yes (Hospitalization)
  Sender: BIOGEN
  Company Number: BR-BIOGEN-2024BI01259333

PATIENT
  Age: 27 Year
  Sex: Female
  Weight: 71 kg

DRUGS (5)
  1. TYSABRI [Suspect]
     Active Substance: NATALIZUMAB
     Indication: Multiple sclerosis
     Route: 050
     Dates: start: 201608, end: 202307
  2. TYSABRI [Suspect]
     Active Substance: NATALIZUMAB
     Route: 050
     Dates: start: 202308, end: 202401
  3. TYSABRI [Suspect]
     Active Substance: NATALIZUMAB
     Route: 050
     Dates: start: 20240304
  4. TYSABRI [Suspect]
     Active Substance: NATALIZUMAB
     Dosage: 20MG/ 100ML OF SALINE SOLUTION
     Route: 050
     Dates: start: 201608, end: 202401
  5. TYSABRI [Suspect]
     Active Substance: NATALIZUMAB
     Dosage: 20MG/ 100ML OF SALINE SOLUTION
     Route: 050
     Dates: start: 20240304

REACTIONS (4)
  - Multiple sclerosis relapse [Not Recovered/Not Resolved]
  - Trigeminal neuralgia [Not Recovered/Not Resolved]
  - Anaemia [Not Recovered/Not Resolved]
  - Prescribed underdose [Not Recovered/Not Resolved]

NARRATIVE: CASE EVENT DATE: 20160801
